FAERS Safety Report 9637713 (Version 1)
Quarter: 2013Q4

REPORT INFORMATION
  Report Type: Report from Study
  Country: BR (occurrence: BR)
  Receive Date: 20131022
  Receipt Date: 20131022
  Transmission Date: 20140711
  Serious: Yes (Other)
  Sender: FDA-Public Use
  Company Number: BR-BAYER-2013-124938

PATIENT
  Age: 20 Year
  Sex: Female

DRUGS (3)
  1. BETAFERON [Suspect]
     Indication: MULTIPLE SCLEROSIS
     Dosage: 1 ML, QOD
     Route: 058
     Dates: start: 2012, end: 20131012
  2. VITAMIN D [Concomitant]
     Indication: MULTIPLE SCLEROSIS
     Dosage: 10 GTT, QD
     Route: 048
     Dates: start: 201304, end: 201309
  3. VITAMIN D [Concomitant]
     Indication: MULTIPLE SCLEROSIS
     Dosage: 3 DF, QD
     Route: 048
     Dates: start: 201309

REACTIONS (8)
  - Multiple sclerosis relapse [None]
  - Musculoskeletal disorder [None]
  - Hypoaesthesia [None]
  - Multiple sclerosis relapse [Recovering/Resolving]
  - Musculoskeletal disorder [Recovering/Resolving]
  - Hypoaesthesia [Recovering/Resolving]
  - Drug ineffective [None]
  - Drug resistance [None]
